FAERS Safety Report 25900805 (Version 1)
Quarter: 2025Q4

REPORT INFORMATION
  Report Type: Spontaneous
  Country: US (occurrence: None)
  Receive Date: 20251008
  Receipt Date: 20251008
  Transmission Date: 20260118
  Serious: Yes (Hospitalization, Disabling)
  Sender: FDA-CTU
  Company Number: None

PATIENT
  Age: 52 Year
  Sex: Female

DRUGS (1)
  1. LEXAPRO [Suspect]
     Active Substance: ESCITALOPRAM OXALATE
     Indication: Depression
     Dates: start: 20150315, end: 20200430

REACTIONS (3)
  - Anxiety [None]
  - Withdrawal syndrome [None]
  - Adverse drug reaction [None]

NARRATIVE: CASE EVENT DATE: 20200501
